FAERS Safety Report 4757783-0 (Version None)
Quarter: 2005Q3

REPORT INFORMATION
  Report Type: 
  Country: None (occurrence: None)
  Receive Date: 20050830
  Receipt Date: 20050818
  Transmission Date: 20060218
  Serious: Yes (Hospitalization)
  Sender: FDA-Public Use
  Company Number: 2005117068

PATIENT
  Age: 83 Year
  Sex: Male

DRUGS (6)
  1. NITROGLYCERIN [Suspect]
     Indication: ILL-DEFINED DISORDER
     Dosage: 15MG/24 HR (QD), TOPICAL
     Route: 061
     Dates: end: 20050721
  2. ALDALIX (SPIRONOLACTONE, FUROSEMIDE) [Suspect]
     Indication: ILL-DEFINED DISORDER
     Dosage: 1 TAB (QD), ORAL
     Route: 048
     Dates: end: 20050721
  3. DIGOXIN [Suspect]
     Indication: ILL-DEFINED DISORDER
     Dosage: SEE IMAGE, ORAL
     Route: 048
     Dates: end: 20050721
  4. ACETYLSALICYLATE LYSINE (ACETYLSALICYLATE LYSINE) [Suspect]
     Indication: ILL-DEFINED DISORDER
     Dosage: 1 DOSE FORM (75 MG, DAILY), ORAL
     Route: 048
  5. AMIODARONE HCL [Suspect]
     Indication: ILL-DEFINED DISORDER
     Dosage: SEE IMAGE
     Route: 048
     Dates: end: 20050721
  6. MOLSIDOMINE (MOLSIDOMINE) [Suspect]
     Dosage: SEE IMAGE
     Route: 048
     Dates: end: 20050721

REACTIONS (5)
  - BLOOD CREATININE INCREASED [None]
  - BLOOD POTASSIUM ABNORMAL [None]
  - CREATININE RENAL CLEARANCE DECREASED [None]
  - HAEMOGLOBIN DECREASED [None]
  - UNEVALUABLE EVENT [None]
